FAERS Safety Report 10249210 (Version 1)
Quarter: 2014Q2

REPORT INFORMATION
  Report Type: Spontaneous
  Country: US (occurrence: None)
  Receive Date: 20140618
  Receipt Date: 20140618
  Transmission Date: 20141212
  Serious: Yes (Hospitalization)
  Sender: FDA-Public Use
  Company Number: None

PATIENT
  Age: 59 Year
  Sex: Male
  Weight: 90.8 kg

DRUGS (1)
  1. BENZOCAINE (HURRICAINE) SPRAY 20% [Suspect]

REACTIONS (6)
  - Oxygen saturation decreased [None]
  - Hyperhidrosis [None]
  - Pallor [None]
  - Skin discolouration [None]
  - Sinus tachycardia [None]
  - Methaemoglobinaemia [None]
